FAERS Safety Report 12482184 (Version 2)
Quarter: 2017Q3

REPORT INFORMATION
  Report Type: Report from Study
  Country: TH (occurrence: TH)
  Receive Date: 20160620
  Receipt Date: 20170829
  Transmission Date: 20171127
  Serious: Yes (Other)
  Sender: FDA-Public Use
  Company Number: PHHY2016TH065930

PATIENT
  Age: 80 Year
  Sex: Female
  Weight: 61 kg

DRUGS (14)
  1. IMATINIB [Suspect]
     Active Substance: IMATINIB
     Indication: GASTROINTESTINAL STROMAL TUMOUR
     Dosage: 2 DF, QD (2 TABLETS PER DAY WITH BREAKFAST)
     Route: 048
     Dates: start: 20160316
  2. OMEPRAZOLE. [Concomitant]
     Active Substance: OMEPRAZOLE
     Indication: GASTRITIS
  3. LASIX [Concomitant]
     Active Substance: FUROSEMIDE
     Indication: PRODUCT USED FOR UNKNOWN INDICATION
     Dosage: 20 MG, (DILUTE AND KEPT IN ROOM TEMPERATURE) 24HR
     Route: 042
  4. PLASIL [Concomitant]
     Active Substance: METOCLOPRAMIDE HYDROCHLORIDE
     Indication: NAUSEA
     Dosage: 1 DF (1 TABLET FOR EVERY 8HOURS), PRN
     Route: 065
  5. ATARAX [Concomitant]
     Active Substance: HYDROXYZINE HYDROCHLORIDE
     Indication: HYPERSENSITIVITY
     Dosage: 1 DF (BEFORE BEDTIME) QD
     Route: 065
  6. OMEPRAZOLE. [Concomitant]
     Active Substance: OMEPRAZOLE
     Indication: GASTRIC ULCER
     Dosage: 1 DF, QD BEFORE BREAKFAST (DONOT CHEW OR CRUSH)
     Route: 065
  7. SENNA [Concomitant]
     Active Substance: SENNA LEAF\SENNOSIDES\SENNOSIDES A AND B
     Indication: CONSTIPATION
     Dosage: 2 DF (DAILY, BEFORE BED TIME FOR LAXATIVE) PRN
     Route: 065
  8. GLIVEC [Suspect]
     Active Substance: IMATINIB MESYLATE
     Indication: GASTROINTESTINAL STROMAL TUMOUR
     Dosage: 300 MG, UNK
     Route: 065
  9. FOLIC ACID. [Concomitant]
     Active Substance: FOLIC ACID
     Indication: MINERAL SUPPLEMENTATION
     Dosage: 1 DF, QD (AFTER BREAKFAST)
     Route: 065
  10. UREA. [Concomitant]
     Active Substance: UREA
     Indication: DRY SKIN
     Dosage: BID (MORNING AND EVENING)
     Route: 061
  11. CPM [Concomitant]
     Active Substance: CHLORPHENIRAMINE MALEATE
     Indication: PRODUCT USED FOR UNKNOWN INDICATION
     Dosage: 10 MG, PRN
     Route: 042
  12. PLASIL [Concomitant]
     Active Substance: METOCLOPRAMIDE HYDROCHLORIDE
     Indication: GASTROINTESTINAL MOTILITY DISORDER
  13. PLASIL [Concomitant]
     Active Substance: METOCLOPRAMIDE HYDROCHLORIDE
     Indication: VOMITING
  14. FERROUS FUMARATE [Concomitant]
     Active Substance: FERROUS FUMARATE
     Indication: MINERAL SUPPLEMENTATION
     Dosage: 1 DF (WITH BREAKFAST AND DINNER), BID
     Route: 065

REACTIONS (9)
  - Anaemia [Unknown]
  - Neutropenia [Recovering/Resolving]
  - White blood cell count decreased [Unknown]
  - Thrombocytopenia [Unknown]
  - Underdose [Unknown]
  - Malignant neoplasm progression [Unknown]
  - Haematocrit decreased [Unknown]
  - Therapy non-responder [Unknown]
  - Gastrointestinal stromal tumour [Unknown]

NARRATIVE: CASE EVENT DATE: 20160427
